FAERS Safety Report 12449589 (Version 1)
Quarter: 2016Q2

REPORT INFORMATION
  Report Type: Other
  Country: US (occurrence: US)
  Receive Date: 20160609
  Receipt Date: 20160609
  Transmission Date: 20160815
  Serious: No
  Sender: FDA-Public Use
  Company Number: US-LUPIN PHARMACEUTICALS INC.-2016-01410

PATIENT
  Age: 51 Year
  Sex: Male

DRUGS (7)
  1. OXYCODONE [Interacting]
     Active Substance: OXYCODONE
     Indication: BREAKTHROUGH PAIN
     Route: 065
  2. OXYCODONE [Interacting]
     Active Substance: OXYCODONE
     Dosage: 5-15MG AT EVERY 3 HOURS
     Route: 048
  3. CIPROFLOXACIN. [Concomitant]
     Active Substance: CIPROFLOXACIN
     Indication: OSTEOMYELITIS
     Route: 065
  4. MORPHINE [Concomitant]
     Active Substance: MORPHINE
     Indication: PAIN
     Dosage: 15-30MG BY MOUTH EVERY 3 HOURS
     Route: 048
  5. MORPHINE [Concomitant]
     Active Substance: MORPHINE
     Indication: BREAKTHROUGH PAIN
     Dosage: 2-4MG IV EVERY 3 HOURS
     Route: 042
  6. RIFAMPICIN [Suspect]
     Active Substance: RIFAMPIN
     Indication: OSTEOMYELITIS
     Route: 065
  7. MORPHINE [Concomitant]
     Active Substance: MORPHINE
     Route: 048

REACTIONS (2)
  - Pain [Recovering/Resolving]
  - Drug interaction [Unknown]
